FAERS Safety Report 10686068 (Version 2)
Quarter: 2015Q1

REPORT INFORMATION
  Report Type: Spontaneous
  Country: US (occurrence: US)
  Receive Date: 20141231
  Receipt Date: 20150102
  Transmission Date: 20150720
  Serious: Yes (Other)
  Sender: FDA-Public Use
  Company Number: US-PFIZER INC-2014361151

PATIENT
  Sex: Male

DRUGS (2)
  1. LYRICA [Suspect]
     Active Substance: PREGABALIN
     Indication: NEURALGIA
  2. LYRICA [Suspect]
     Active Substance: PREGABALIN
     Indication: PAIN
     Dosage: UNK

REACTIONS (9)
  - Dry mouth [Unknown]
  - Back pain [Unknown]
  - Oesophageal stenosis [Unknown]
  - Bedridden [Unknown]
  - Weight increased [Unknown]
  - Drug ineffective [Unknown]
  - Suicidal ideation [Unknown]
  - Drug dependence [Unknown]
  - Sleep disorder [Unknown]
